FAERS Safety Report 9014370 (Version 1)
Quarter: 2013Q1

REPORT INFORMATION
  Report Type: Spontaneous
  Country: US (occurrence: US)
  Receive Date: 20130115
  Receipt Date: 20130115
  Transmission Date: 20140127
  Serious: No
  Sender: FDA-Public Use
  Company Number: US-PFIZER INC-2013014901

PATIENT
  Sex: Male

DRUGS (2)
  1. CHANTIX [Suspect]
     Dosage: UNK
     Dates: start: 2012
  2. CHANTIX [Suspect]
     Dosage: 1 MG, UNK

REACTIONS (3)
  - Fatigue [Unknown]
  - Abnormal dreams [Unknown]
  - Erectile dysfunction [Unknown]
